FAERS Safety Report 5480423-2 (Version None)
Quarter: 2007Q4

REPORT INFORMATION
  Report Type: 
  Country: None (occurrence: None)
  Receive Date: 20071009
  Receipt Date: 20070928
  Transmission Date: 20080405
  Serious: Yes (Death)
  Sender: FDA-Public Use
  Company Number: HQWYE853215MAR04

PATIENT
  Sex: Female

DRUGS (2)
  1. PREMPRO [Suspect]
     Indication: HORMONE REPLACEMENT THERAPY
     Dosage: UNKNOWN
     Route: 048
     Dates: start: 19960101, end: 20001201
  2. PREMARIN [Suspect]
     Indication: DRUG USE FOR UNKNOWN INDICATION
     Dosage: UNKNOWN
     Route: 065

REACTIONS (1)
  - BREAST CANCER METASTATIC [None]
